FAERS Safety Report 24861882 (Version 2)
Quarter: 2025Q1

REPORT INFORMATION
  Report Type: Spontaneous
  Country: US (occurrence: US)
  Receive Date: 20250120
  Receipt Date: 20250131
  Transmission Date: 20250408
  Serious: Yes (Hospitalization)
  Sender: DOMPE FARMACEUTICI
  Company Number: US-FARMAPROD-202501-0103

PATIENT
  Age: 40 Year
  Sex: Female

DRUGS (7)
  1. OXERVATE [Suspect]
     Active Substance: CENEGERMIN-BKBJ
     Indication: Neurotrophic keratopathy
     Route: 047
     Dates: start: 20241227
  2. LATANOPROST [Concomitant]
     Active Substance: LATANOPROST
  3. ROSUVASTATIN [Concomitant]
     Active Substance: ROSUVASTATIN
  4. FENOFIBRATE [Concomitant]
     Active Substance: FENOFIBRATE
  5. UNSPECIFIED INGREDIENT [Concomitant]
     Active Substance: UNSPECIFIED INGREDIENT
  6. INSULIN NOS [Concomitant]
     Active Substance: INSULIN NOS
  7. ACYCLOVIR [Concomitant]
     Active Substance: ACYCLOVIR

REACTIONS (3)
  - Renal disorder [Unknown]
  - Eye swelling [Recovered/Resolved]
  - Periorbital swelling [Recovered/Resolved]

NARRATIVE: CASE EVENT DATE: 20250105
